FAERS Safety Report 4776765-6 (Version None)
Quarter: 2005Q3

REPORT INFORMATION
  Report Type: 
  Country: None (occurrence: None)
  Receive Date: 20050923
  Receipt Date: 20050913
  Transmission Date: 20060218
  Serious: Yes (Hospitalization)
  Sender: FDA-Public Use
  Company Number: PHHO2005KR14467

PATIENT
  Age: 65 Year
  Sex: Male

DRUGS (4)
  1. MYCOPHENOLIC ACID [Suspect]
     Indication: TRANSPLANT
     Dosage: 1080 MG/DAY
     Route: 048
     Dates: start: 20041123
  2. NEORAL [Concomitant]
     Indication: TRANSPLANT
     Dosage: 100 MG/DAY
     Dates: start: 19980819
  3. PREDNISOLONE [Concomitant]
     Indication: TRANSPLANT
     Dosage: 5 MG/DAY
     Dates: start: 19980819
  4. DIOVAN [Concomitant]
     Indication: HYPERTENSION
     Dates: start: 20050701

REACTIONS (1)
  - THROMBOSIS [None]
